FAERS Safety Report 8510757-6 (Version None)
Quarter: 2012Q3

REPORT INFORMATION
  Report Type: 
  Country: None (occurrence: None)
  Receive Date: 20120716
  Receipt Date: 20120713
  Transmission Date: 20120928
  Serious: No
  Sender: FDA-Public Use
  Company Number: US-PFIZER INC-2012169668

PATIENT
  Sex: Female
  Weight: 50.794 kg

DRUGS (2)
  1. PRISTIQ [Suspect]
     Indication: DEPRESSION
     Dosage: 50 MG, 1X/DAY
     Route: 048
     Dates: start: 20120708
  2. LEVETIRACETAM [Concomitant]
     Indication: CONVULSION
     Dosage: UNK

REACTIONS (1)
  - FATIGUE [None]
